FAERS Safety Report 10860573 (Version 4)
Quarter: 2015Q1

REPORT INFORMATION
  Report Type: Spontaneous
  Country: FR (occurrence: FR)
  Receive Date: 20150223
  Receipt Date: 20150331
  Transmission Date: 20150721
  Serious: Yes (Other)
  Sender: FDA-Public Use
  Company Number: PHHY2015FR018285

PATIENT
  Age: 38 Year
  Sex: Female

DRUGS (11)
  1. TRAMADOL [Concomitant]
     Active Substance: TRAMADOL
     Indication: PAIN IN EXTREMITY
     Route: 065
  2. ZOLOFT [Suspect]
     Active Substance: SERTRALINE HYDROCHLORIDE
     Indication: BIPOLAR DISORDER
     Dosage: 50 MG, BID
     Route: 065
  3. CODEINE [Concomitant]
     Active Substance: CODEINE
     Indication: PRODUCT USED FOR UNKNOWN INDICATION
     Dosage: UNK
     Route: 065
  4. GABAPENTIN SANDOZ [Suspect]
     Active Substance: GABAPENTIN
     Indication: CERVICOBRACHIAL SYNDROME
     Dosage: 100 MG, TID
     Route: 048
  5. GABAPENTIN SANDOZ [Suspect]
     Active Substance: GABAPENTIN
     Dosage: 200 MG, BID
     Route: 048
  6. VALIUM [Suspect]
     Active Substance: DIAZEPAM
     Indication: BIPOLAR DISORDER
     Dosage: 5 MG, PRN
     Route: 065
  7. IXPRIM [Concomitant]
     Active Substance: ACETAMINOPHEN\TRAMADOL HYDROCHLORIDE
     Indication: PAIN IN EXTREMITY
     Route: 065
  8. XEROQUEL [Concomitant]
     Active Substance: QUETIAPINE FUMARATE
     Indication: PRODUCT USED FOR UNKNOWN INDICATION
     Dosage: 1 DF, UNK (EVENING)
     Route: 065
  9. GABAPENTIN SANDOZ [Suspect]
     Active Substance: GABAPENTIN
     Indication: PAIN IN EXTREMITY
     Dosage: 400 MG, TID
     Route: 048
     Dates: end: 201501
  10. GABAPENTIN SANDOZ [Suspect]
     Active Substance: GABAPENTIN
     Dosage: 800 MG, QD
     Route: 048
     Dates: start: 20150205
  11. LAROXYL [Suspect]
     Active Substance: AMITRIPTYLINE
     Indication: BIPOLAR DISORDER
     Dosage: 25 DRP, UNK
     Route: 065

REACTIONS (7)
  - Dysarthria [Not Recovered/Not Resolved]
  - Eyelid ptosis [Not Recovered/Not Resolved]
  - Inappropriate affect [Unknown]
  - Gait disturbance [Unknown]
  - Mydriasis [Unknown]
  - Toxicity to various agents [Unknown]
  - Hemiplegia [Unknown]

NARRATIVE: CASE EVENT DATE: 20150120
